FAERS Safety Report 13567627 (Version 4)
Quarter: 2017Q3

REPORT INFORMATION
  Report Type: Report from Study
  Country: US (occurrence: US)
  Receive Date: 20170522
  Receipt Date: 20170728
  Transmission Date: 20171127
  Serious: Yes (Other)
  Sender: FDA-Public Use
  Company Number: PHEH2017US014981

PATIENT
  Sex: Female

DRUGS (1)
  1. COSENTYX [Suspect]
     Active Substance: SECUKINUMAB
     Indication: PSORIATIC ARTHROPATHY
     Dosage: 300 MG, QMO
     Route: 058
     Dates: start: 20170126, end: 20170427

REACTIONS (4)
  - Encephalopathy [Unknown]
  - Hepatic enzyme increased [Unknown]
  - Oesophageal candidiasis [Unknown]
  - Upper respiratory tract infection [Unknown]
